FAERS Safety Report 20156010 (Version 1)
Quarter: 2021Q4

REPORT INFORMATION
  Report Type: Spontaneous
  Country: GB (occurrence: GB)
  Receive Date: 20211207
  Receipt Date: 20211207
  Transmission Date: 20220304
  Serious: Yes (Other)
  Sender: FDA-Public Use
  Company Number: None

PATIENT
  Age: 84 Year
  Sex: Female
  Weight: 76 kg

DRUGS (10)
  1. AMLODIPINE [Suspect]
     Active Substance: AMLODIPINE BESYLATE
     Indication: Product used for unknown indication
     Dosage: 5 MILLIGRAM
     Route: 048
     Dates: start: 20211119, end: 20211122
  2. AMLODIPINE [Concomitant]
     Active Substance: AMLODIPINE BESYLATE
     Dosage: ONE TO BE TAKEN DAILY
     Dates: start: 20211117, end: 20211122
  3. ASPIRIN [Concomitant]
     Active Substance: ASPIRIN
     Dosage: ONE TO BE TAKEN DAILY
     Dates: start: 20210726
  4. ATORVASTATIN [Concomitant]
     Active Substance: ATORVASTATIN
     Dosage: TAKE ONE DAILY
     Dates: start: 20200730
  5. CEPHALEXIN [Concomitant]
     Active Substance: CEPHALEXIN
     Dosage: 1 TABLET AT NIGHT
     Dates: start: 20210311, end: 20211021
  6. ESTRADIOL [Concomitant]
     Active Substance: ESTRADIOL
     Dosage: CHANGED BACK TO VAGIFEM
     Dates: start: 20210521, end: 20211101
  7. OMEPRAZOLE [Concomitant]
     Active Substance: OMEPRAZOLE
     Dosage: TAKE ONE DAILY
     Dates: start: 20210415
  8. SOLIFENACIN [Concomitant]
     Active Substance: SOLIFENACIN
     Dosage: ONE TO BE TAKEN DAILY
     Dates: start: 20210216
  9. TRIMETHOPRIM [Concomitant]
     Active Substance: TRIMETHOPRIM
     Dosage: 1 TO BE TAKEN TWICE DAILY
     Dates: start: 20210901, end: 20210908
  10. VAGIFEM [Concomitant]
     Active Substance: ESTRADIOL
     Dosage: ONE TO BE ADMINISTERED TO VAGINA TWICE WEEKLY
     Dates: start: 20211101

REACTIONS (4)
  - Depressed level of consciousness [Recovered/Resolved]
  - Hypotension [Recovered/Resolved]
  - Dizziness [Unknown]
  - Blood pressure decreased [Unknown]

NARRATIVE: CASE EVENT DATE: 20211122
